FAERS Safety Report 21548438 (Version 6)
Quarter: 2024Q2

REPORT INFORMATION
  Report Type: Spontaneous
  Country: US (occurrence: US)
  Receive Date: 20221103
  Receipt Date: 20240612
  Transmission Date: 20240716
  Serious: No
  Sender: FDA-Public Use
  Company Number: US-PFIZER INC-202200586093

PATIENT
  Age: 61 Year
  Sex: Female

DRUGS (1)
  1. XELJANZ XR [Suspect]
     Active Substance: TOFACITINIB CITRATE
     Indication: Rheumatoid arthritis
     Dosage: 11 MG, 1X/DAY, TAKE 1 TABLET (11 MG) BY MOUTH ONCE DAILY. DO NOT CRUSH, CHEW OR SPLIT. SWALLOW WHOLE
     Route: 048
     Dates: start: 2022

REACTIONS (4)
  - Malaise [Unknown]
  - Palpitations [Recovered/Resolved]
  - Upper respiratory tract infection [Recovering/Resolving]
  - Product dose omission issue [Unknown]

NARRATIVE: CASE EVENT DATE: 20220101
